FAERS Safety Report 4746774-1 (Version None)
Quarter: 2005Q3

REPORT INFORMATION
  Report Type: 
  Country: None (occurrence: None)
  Receive Date: 20050815
  Receipt Date: 20050804
  Transmission Date: 20060218
  Serious: Yes (Hospitalization)
  Sender: FDA-Public Use
  Company Number: 2005101073

PATIENT
  Age: 28 Year
  Sex: Female

DRUGS (1)
  1. DEPO-PROVERA [Suspect]
     Indication: MENSTRUAL DISCOMFORT
     Dosage: 150 MG (150 MG, 1ST INJECTION, EVERY 3 MONTHS),
     Dates: start: 20050601, end: 20050601

REACTIONS (2)
  - OVARIAN CYST RUPTURED [None]
  - VAGINAL HAEMORRHAGE [None]
